FAERS Safety Report 16831329 (Version 2)
Quarter: 2019Q3

REPORT INFORMATION
  Report Type: Spontaneous
  Country: CA (occurrence: CA)
  Receive Date: 20190920
  Receipt Date: 20190920
  Transmission Date: 20191005
  Serious: Yes (Other)
  Sender: FDA-Public Use
  Company Number: PHHY2019CA212157

PATIENT
  Age: 40 Year
  Sex: Female

DRUGS (3)
  1. SANDOSTATIN LAR DEPOT [Suspect]
     Active Substance: OCTREOTIDE ACETATE
     Indication: ACROMEGALY
     Dosage: 30 MG, QMO
     Route: 030
  2. CODEINE PHOSPHATE [Suspect]
     Active Substance: CODEINE PHOSPHATE
     Indication: PRODUCT USED FOR UNKNOWN INDICATION
     Dosage: UNK
     Route: 065
  3. CITALOPRAM HYDROBROMIDE. [Concomitant]
     Active Substance: CITALOPRAM HYDROBROMIDE
     Indication: PRODUCT USED FOR UNKNOWN INDICATION
     Dosage: UNK
     Route: 065

REACTIONS (27)
  - Emotional disorder [Unknown]
  - Mood altered [Unknown]
  - Mood swings [Unknown]
  - Needle issue [Unknown]
  - Influenza like illness [Unknown]
  - Dizziness [Unknown]
  - Food poisoning [Unknown]
  - Diarrhoea [Unknown]
  - Insomnia [Unknown]
  - Haemorrhage [Unknown]
  - Hormone level abnormal [Unknown]
  - Anger [Unknown]
  - Impatience [Unknown]
  - Malaise [Unknown]
  - Menorrhagia [Unknown]
  - Pneumonia bacterial [Unknown]
  - Blood pressure increased [Unknown]
  - Heart rate increased [Unknown]
  - Weight decreased [Unknown]
  - Depressed mood [Unknown]
  - Injection site pain [Unknown]
  - Drug hypersensitivity [Unknown]
  - Hypersomnia [Unknown]
  - Neoplasm progression [Unknown]
  - Stress [Unknown]
  - Fatigue [Unknown]
  - Headache [Unknown]
